FAERS Safety Report 21138133 (Version 1)
Quarter: 2022Q3

REPORT INFORMATION
  Report Type: Spontaneous
  Country: US (occurrence: None)
  Receive Date: 20220727
  Receipt Date: 20220727
  Transmission Date: 20221027
  Serious: Yes (Death)
  Sender: FDA-Public Use
  Company Number: None

PATIENT
  Age: 64 Year
  Sex: Male
  Weight: 81.5 kg

DRUGS (1)
  1. AXICABTAGENE CILOLEUCEL [Suspect]
     Active Substance: AXICABTAGENE CILOLEUCEL
     Indication: Diffuse large B-cell lymphoma
     Dosage: OTHER QUANTITY : 2X10E8 ANTICD19CAR;?FREQUENCY : ONCE;?
     Route: 042
     Dates: start: 20220708, end: 20220708

REACTIONS (14)
  - Immune effector cell-associated neurotoxicity syndrome [None]
  - Cytokine release syndrome [None]
  - Lymphocyte adoptive therapy [None]
  - Transaminases increased [None]
  - Serum ferritin increased [None]
  - Blood triglycerides increased [None]
  - Haemophagocytic lymphohistiocytosis [None]
  - Lactic acidosis [None]
  - Continuous haemodiafiltration [None]
  - Capillary leak syndrome [None]
  - Hepatic failure [None]
  - Coagulopathy [None]
  - Haemodynamic instability [None]
  - Cardio-respiratory arrest [None]
